FAERS Safety Report 18394219 (Version 1)
Quarter: 2020Q4

REPORT INFORMATION
  Report Type: Spontaneous
  Country: DE (occurrence: DE)
  Receive Date: 20201016
  Receipt Date: 20201016
  Transmission Date: 20210114
  Serious: Yes (Hospitalization, Other)
  Sender: FDA-Public Use
  Company Number: DE-AMERICAN REGENT INC-2020002119

PATIENT
  Age: 70 Year
  Sex: Male

DRUGS (6)
  1. FERINJECT [Suspect]
     Active Substance: FERRIC CARBOXYMALTOSE
     Indication: POST PROCEDURAL HAEMORRHAGE
     Dosage: UNK
     Route: 042
  2. VENOFER [Suspect]
     Active Substance: IRON SUCROSE
     Indication: POST PROCEDURAL HAEMORRHAGE
     Dosage: UNK
     Route: 042
  3. MALTOFER                           /00023548/ [Suspect]
     Active Substance: IRON POLYMALTOSE
     Indication: POST PROCEDURAL HAEMORRHAGE
     Route: 048
  4. NEBIDO [Suspect]
     Active Substance: TESTOSTERONE UNDECANOATE
     Indication: PRODUCT USED FOR UNKNOWN INDICATION
     Dosage: 1 IN 3 M
     Route: 030
  5. FERRUM HAUSMANN                    /00023505/ [Suspect]
     Active Substance: FERROUS FUMARATE
     Indication: POST PROCEDURAL HAEMORRHAGE
     Route: 048
  6. NEBIDO [Suspect]
     Active Substance: TESTOSTERONE UNDECANOATE
     Dosage: 500 MILLILITER
     Route: 030

REACTIONS (36)
  - Sudden hearing loss [Recovered/Resolved]
  - Visual impairment [Unknown]
  - Peripheral swelling [Unknown]
  - Diarrhoea [Unknown]
  - Dyspnoea [Unknown]
  - Nausea [Unknown]
  - Loss of consciousness [Recovered/Resolved]
  - Red blood cell count increased [Unknown]
  - Visual acuity reduced [Recovered/Resolved]
  - Muscle spasms [Unknown]
  - Pyrexia [Unknown]
  - Hormone level abnormal [Unknown]
  - Vertigo [Unknown]
  - Multi-organ disorder [Unknown]
  - Heart valve stenosis [Unknown]
  - Heart valve operation [Unknown]
  - Hormone level abnormal [Unknown]
  - Therapeutic response unexpected [Unknown]
  - Circulatory collapse [Unknown]
  - Muscular weakness [Unknown]
  - Tinnitus [Unknown]
  - Cardiac pacemaker insertion [Unknown]
  - Chills [Unknown]
  - Heart rate increased [Unknown]
  - Asthenia [Unknown]
  - Micturition disorder [Unknown]
  - Nervousness [Unknown]
  - Drug ineffective [Unknown]
  - Cardiovascular disorder [Unknown]
  - Prostatic disorder [Unknown]
  - Visual impairment [Unknown]
  - Post procedural haemorrhage [Unknown]
  - Neuralgia [Unknown]
  - General physical health deterioration [Unknown]
  - Hypertension [Unknown]
  - Abdominal pain [Unknown]

NARRATIVE: CASE EVENT DATE: 20100709
